FAERS Safety Report 8115004-5 (Version None)
Quarter: 2012Q1

REPORT INFORMATION
  Report Type: 
  Country: None (occurrence: None)
  Receive Date: 20120131
  Receipt Date: 20120126
  Transmission Date: 20120608
  Serious: Yes (Hospitalization, Other)
  Sender: FDA-Public Use
  Company Number: 2010SP006063

PATIENT
  Age: 40 Year
  Sex: Female
  Weight: 81.6475 kg

DRUGS (15)
  1. SINGULAIR [Concomitant]
  2. ANAPROX DS [Concomitant]
  3. BACTRIM DS [Concomitant]
  4. ARMODAFINIL [Concomitant]
  5. IBURPROFEN [Concomitant]
  6. TUSSIONEX [Concomitant]
  7. COUMADIN [Suspect]
     Indication: PULMONARY EMBOLISM
     Dosage: 5 MG; QD
     Dates: start: 20080601
  8. HYDROCHLOROTHIAZIDE [Concomitant]
  9. KEPPRA [Concomitant]
  10. VALIUM [Concomitant]
  11. BENAZEPRIL HYDROCHLORIDE AND HYDROCHLOROTHIAZIDE [Concomitant]
  12. CYMBALTA [Concomitant]
  13. FLAGYL [Concomitant]
  14. NUVARING [Suspect]
     Indication: UTERINE LEIOMYOMA
     Dates: start: 20071201, end: 20080622
  15. FLONASE [Concomitant]

REACTIONS (48)
  - VENTRICULAR HYPERTROPHY [None]
  - PULMONARY EMBOLISM [None]
  - VULVOVAGINAL MYCOTIC INFECTION [None]
  - CONTUSION [None]
  - HEART RATE DECREASED [None]
  - IRON DEFICIENCY ANAEMIA [None]
  - VERTIGO [None]
  - MITRAL VALVE INCOMPETENCE [None]
  - CYSTITIS [None]
  - HAEMATOCHEZIA [None]
  - THROMBOSIS [None]
  - DEMYELINATION [None]
  - SINUSITIS [None]
  - ANXIETY [None]
  - ROAD TRAFFIC ACCIDENT [None]
  - NASAL OBSTRUCTION [None]
  - HYPOKALAEMIA [None]
  - INJURY [None]
  - SWELLING [None]
  - SINUS TACHYCARDIA [None]
  - RHINITIS ALLERGIC [None]
  - HYPERVENTILATION [None]
  - HEADACHE [None]
  - AORTIC VALVE INCOMPETENCE [None]
  - HYPERCOAGULATION [None]
  - EXTRASYSTOLES [None]
  - URINARY TRACT INFECTION [None]
  - DYSFUNCTIONAL UTERINE BLEEDING [None]
  - PRODUCTIVE COUGH [None]
  - TRICUSPID VALVE INCOMPETENCE [None]
  - ELECTROCARDIOGRAM ST SEGMENT DEPRESSION [None]
  - CHEST PAIN [None]
  - NEUROPATHY PERIPHERAL [None]
  - PARAESTHESIA [None]
  - NECK PAIN [None]
  - ABDOMINAL PAIN LOWER [None]
  - OVARIAN CYST [None]
  - DIZZINESS [None]
  - PYREXIA [None]
  - MIGRAINE [None]
  - CONDITION AGGRAVATED [None]
  - POST-TRAUMATIC STRESS DISORDER [None]
  - MULTIPLE SCLEROSIS [None]
  - MENORRHAGIA [None]
  - TENDERNESS [None]
  - BURNING SENSATION [None]
  - BACK PAIN [None]
  - QRS AXIS ABNORMAL [None]
